FAERS Safety Report 16499211 (Version 1)
Quarter: 2019Q2

REPORT INFORMATION
  Report Type: Spontaneous
  Country: US (occurrence: US)
  Receive Date: 20190520
  Receipt Date: 20190520
  Transmission Date: 20190711
  Serious: No
  Sender: FDA-Public Use
  Company Number: None

PATIENT
  Age: 62 Year
  Sex: Female

DRUGS (1)
  1. BOTOX [Suspect]
     Active Substance: ONABOTULINUMTOXINA
     Dates: start: 201903

REACTIONS (7)
  - Eyelid ptosis [None]
  - Pain in extremity [None]
  - Paraesthesia [None]
  - Eye pain [None]
  - Movement disorder [None]
  - Injection site reaction [None]
  - Decreased activity [None]

NARRATIVE: CASE EVENT DATE: 20190520
